FAERS Safety Report 8110475-2 (Version None)
Quarter: 2012Q1

REPORT INFORMATION
  Report Type: 
  Country: None (occurrence: None)
  Receive Date: 20120202
  Receipt Date: 20120124
  Transmission Date: 20120608
  Serious: Yes (Other)
  Sender: FDA-Public Use
  Company Number: US-ASTRAZENECA-2011SE71200

PATIENT
  Age: 49 Year
  Sex: Female

DRUGS (2)
  1. SEROQUEL [Suspect]
     Route: 048
  2. SEROQUEL [Suspect]
     Indication: INSOMNIA
     Route: 048

REACTIONS (7)
  - PITUITARY TUMOUR [None]
  - DRUG DOSE OMISSION [None]
  - INSOMNIA [None]
  - INCORRECT DOSE ADMINISTERED [None]
  - DELIRIUM [None]
  - OFF LABEL USE [None]
  - SOMNOLENCE [None]
